FAERS Safety Report 5019159-0 (Version None)
Quarter: 2006Q2

REPORT INFORMATION
  Report Type: 
  Country: None (occurrence: None)
  Receive Date: 20060531
  Receipt Date: 20060517
  Transmission Date: 20061013
  Serious: Yes (Other)
  Sender: FDA-Public Use
  Company Number: 222181

PATIENT
  Age: 44 Year
  Sex: Male

DRUGS (2)
  1. RAPTIVA [Suspect]
     Indication: PSORIASIS
     Dosage: 0.9 ML, 1/WEEK, SUBCUTANEOUS
     Route: 058
     Dates: start: 20060117
  2. CYCLOSPORINE [Concomitant]

REACTIONS (2)
  - FACIAL PALSY [None]
  - INFLUENZA LIKE ILLNESS [None]
